FAERS Safety Report 4456956-4 (Version None)
Quarter: 2004Q3

REPORT INFORMATION
  Report Type: 
  Country: None (occurrence: None)
  Receive Date: 20040921
  Receipt Date: 20040913
  Transmission Date: 20050211
  Serious: Yes (Death, Hospitalization, Other)
  Sender: FDA-Public Use
  Company Number: US-JNJFOC-20040903463

PATIENT
  Age: 55 Year
  Sex: Male

DRUGS (1)
  1. ACETAMINOPHEN (ACETAMIOPHEN) UNSPECIFIED [Suspect]
     Indication: SUICIDE ATTEMPT
     Dosage: ORAL
     Route: 048

REACTIONS (10)
  - ANION GAP DECREASED [None]
  - ASPARTATE AMINOTRANSFERASE INCREASED [None]
  - BLOOD CREATINE PHOSPHOKINASE INCREASED [None]
  - BLOOD CREATININE INCREASED [None]
  - ENCEPHALOPATHY [None]
  - INTERNATIONAL NORMALISED RATIO INCREASED [None]
  - NEUTROPENIA [None]
  - PYREXIA [None]
  - SINUS TACHYCARDIA [None]
  - SOMNOLENCE [None]
